FAERS Safety Report 6109882-9 (Version None)
Quarter: 2009Q1

REPORT INFORMATION
  Report Type: 
  Country: None (occurrence: None)
  Receive Date: 20090309
  Receipt Date: 20090309
  Transmission Date: 20090719
  Serious: Yes (Other)
  Sender: FDA-Public Use
  Company Number: None

PATIENT
  Age: 67 Year
  Sex: Female
  Weight: 40.8237 kg

DRUGS (1)
  1. UNITHROID [Suspect]
     Indication: AUTOIMMUNE THYROIDITIS
     Dosage: 1 1/4 ONCE DAILY PO
     Route: 048
     Dates: start: 20090304, end: 20090308

REACTIONS (8)
  - DYSPNOEA [None]
  - FEELING ABNORMAL [None]
  - FEELING HOT [None]
  - HYPERHIDROSIS [None]
  - MALAISE [None]
  - PRODUCT QUALITY ISSUE [None]
  - PRURITUS [None]
  - SKIN BURNING SENSATION [None]
